FAERS Safety Report 9785662 (Version 1)
Quarter: 2013Q4

REPORT INFORMATION
  Report Type: Spontaneous
  Country: US (occurrence: None)
  Receive Date: 20131226
  Receipt Date: 20131226
  Transmission Date: 20140711
  Serious: No
  Sender: FDA-Public Use
  Company Number: None

PATIENT
  Age: 80 Year
  Sex: Male
  Weight: 72.58 kg

DRUGS (2)
  1. VESICARE [Suspect]
     Indication: BLADDER DISORDER
     Dosage: 5 MG   1 PILL PER DAY  ONE  MOUTH
     Route: 048
     Dates: start: 20131115, end: 20131119
  2. VITAMIN D [Concomitant]

REACTIONS (2)
  - Abdominal pain upper [None]
  - Headache [None]
